FAERS Safety Report 6339102-1 (Version None)
Quarter: 2009Q3

REPORT INFORMATION
  Report Type: 
  Country: None (occurrence: None)
  Receive Date: 20090903
  Receipt Date: 20090831
  Transmission Date: 20100115
  Serious: Yes (Other)
  Sender: FDA-Public Use
  Company Number: FR-BRISTOL-MYERS SQUIBB COMPANY-14760169

PATIENT
  Age: 40 Year
  Sex: Male

DRUGS (3)
  1. BLEOMYCIN SULFATE [Suspect]
     Indication: TESTICULAR CANCER METASTATIC
  2. ETOPOSIDE [Concomitant]
  3. PLATINUM [Concomitant]

REACTIONS (1)
  - ERYTHEMA [None]
